FAERS Safety Report 23875470 (Version 2)
Quarter: 2024Q2

REPORT INFORMATION
  Report Type: Report from Study
  Country: FR (occurrence: FR)
  Receive Date: 20240520
  Receipt Date: 20240531
  Transmission Date: 20240716
  Serious: Yes (Death)
  Sender: FDA-Public Use
  Company Number: FR-ROCHE-3559682

PATIENT
  Age: 41 Year
  Sex: Female

DRUGS (3)
  1. PACLITAXEL [Suspect]
     Active Substance: PACLITAXEL
     Indication: Non-small cell lung cancer
     Dosage: 200 MILLIGRAM/SQ. METER, Q3W,( SHE RECEIVED LAST ADMINISTRATION OF STUDY TREATMENT)
     Route: 042
     Dates: start: 20240104, end: 20240418
  2. BEVACIZUMAB [Suspect]
     Active Substance: BEVACIZUMAB
     Indication: Non-small cell lung cancer
     Dosage: 15 MILLIGRAM/KILOGRAM, Q3W,(SHE RECEIVED LAST ADMINISTRATION OF STUDY TREATMENT)
     Route: 042
     Dates: start: 20240104, end: 20240418
  3. ATEZOLIZUMAB [Concomitant]
     Active Substance: ATEZOLIZUMAB
     Indication: Non-small cell lung cancer
     Dosage: 1200 MILLIGRAM, Q3W,(SHE RECEIVED LAST ADMINISTRATION OF STUDY TREATMENT)
     Route: 065
     Dates: start: 20240104, end: 20240418

REACTIONS (1)
  - Cerebrovascular accident [Fatal]

NARRATIVE: CASE EVENT DATE: 20240505
